FAERS Safety Report 4810501-X (Version None)
Quarter: 2005Q4

REPORT INFORMATION
  Report Type: 
  Country: None (occurrence: None)
  Receive Date: 20051025
  Receipt Date: 20051025
  Transmission Date: 20060501
  Serious: Yes (Death)
  Sender: FDA-Public Use
  Company Number: None

PATIENT
  Age: 45 Year
  Sex: Male
  Weight: 73 kg

DRUGS (9)
  1. ZIPRASIDONE HCL [Suspect]
     Indication: SCHIZOPHRENIA
     Dosage: 40 MG TID PO
     Route: 048
     Dates: start: 20050810, end: 20051008
  2. ZIPRASIDONE HCL [Suspect]
     Dosage: 80 MG Q2000 PO
     Route: 048
  3. DOCUSATE SODIUM [Concomitant]
  4. ARICEPT [Concomitant]
  5. CYMBALTA [Concomitant]
  6. NAMENDA [Concomitant]
  7. SORBITOL [Concomitant]
  8. TRAZODONE HCL [Concomitant]
  9. ZIPRASIDONE [Concomitant]

REACTIONS (5)
  - BLOOD PRESSURE DECREASED [None]
  - BODY TEMPERATURE INCREASED [None]
  - HEART RATE INCREASED [None]
  - LOSS OF CONSCIOUSNESS [None]
  - OXYGEN SATURATION DECREASED [None]
